FAERS Safety Report 7042418-7 (Version None)
Quarter: 2010Q4

REPORT INFORMATION
  Report Type: 
  Country: None (occurrence: None)
  Receive Date: 20101013
  Receipt Date: 20100810
  Transmission Date: 20110411
  Serious: No
  Sender: FDA-Public Use
  Company Number: US-ASTRAZENECA-2010SE37502

PATIENT
  Age: 67 Year
  Sex: Female
  Weight: 86.2 kg

DRUGS (3)
  1. SYMBICORT [Suspect]
     Indication: ASTHMA
     Dosage: 80/4.5 2 PUFFS
     Route: 055
  2. ZANTAC [Concomitant]
     Indication: GASTROOESOPHAGEAL REFLUX DISEASE
  3. PROVENTIL [Concomitant]

REACTIONS (2)
  - DRUG DOSE OMISSION [None]
  - DYSPHONIA [None]
